FAERS Safety Report 11510829 (Version 2)
Quarter: 2015Q4

REPORT INFORMATION
  Report Type: Spontaneous
  Country: IT (occurrence: IT)
  Receive Date: 20150915
  Receipt Date: 20151005
  Transmission Date: 20160304
  Serious: Yes (Other)
  Sender: FDA-Public Use
  Company Number: IT-JNJFOC-20150906235

PATIENT
  Age: 41 Year
  Sex: Male

DRUGS (3)
  1. HALDOL [Suspect]
     Active Substance: HALOPERIDOL
     Indication: PARANOID PERSONALITY DISORDER
     Route: 048
     Dates: end: 20150713
  2. HALDOL [Suspect]
     Active Substance: HALOPERIDOL
     Indication: PARANOID PERSONALITY DISORDER
     Route: 048
     Dates: start: 20150622
  3. HALDOL [Suspect]
     Active Substance: HALOPERIDOL
     Indication: PARANOID PERSONALITY DISORDER
     Route: 048
     Dates: start: 20150706

REACTIONS (4)
  - Sedation [Unknown]
  - Adverse drug reaction [Unknown]
  - Muscle rigidity [Recovering/Resolving]
  - Dysarthria [Recovering/Resolving]

NARRATIVE: CASE EVENT DATE: 20150706
